FAERS Safety Report 8294783-0 (Version None)
Quarter: 2012Q2

REPORT INFORMATION
  Report Type: 
  Country: None (occurrence: None)
  Receive Date: 20120418
  Receipt Date: 20120405
  Transmission Date: 20120825
  Serious: Yes (Hospitalization)
  Sender: FDA-Public Use
  Company Number: DE-AMGEN-DEUCT2012022751

PATIENT
  Age: 51 Year
  Sex: Male
  Weight: 94 kg

DRUGS (3)
  1. VOLTAREN [Concomitant]
     Dosage: 2 DF, 1X/DAY
     Dates: start: 20120201
  2. ETANERCEPT [Suspect]
     Indication: ANKYLOSING SPONDYLITIS
     Dosage: 50 MG, QWK
     Dates: start: 20111018, end: 20120201
  3. LISINOPRIL [Concomitant]
     Indication: HYPERTENSION
     Dosage: 15 MG, 1X/DAY

REACTIONS (1)
  - ANKYLOSING SPONDYLITIS [None]
